FAERS Safety Report 13913792 (Version 1)
Quarter: 2017Q3

REPORT INFORMATION
  Report Type: Spontaneous
  Country: US (occurrence: US)
  Receive Date: 20170828
  Receipt Date: 20170828
  Transmission Date: 20171127
  Serious: No
  Sender: FDA-Public Use
  Company Number: US-ROCHE-1140218

PATIENT
  Sex: Female
  Weight: 22.2 kg

DRUGS (4)
  1. NUTROPIN AQ [Suspect]
     Active Substance: SOMATROPIN
     Dosage: OR 0.18 ML PER INJECTION
     Route: 058
  2. PRILOSEC [Concomitant]
     Active Substance: OMEPRAZOLE MAGNESIUM
     Route: 065
  3. NUTROPIN AQ [Suspect]
     Active Substance: SOMATROPIN
     Indication: GROWTH HORMONE DEFICIENCY
     Dosage: 0.036 MG/KG/DAY
     Route: 058
  4. PENTASA [Concomitant]
     Active Substance: MESALAMINE
     Route: 048

REACTIONS (2)
  - Contusion [Unknown]
  - Lymphadenopathy [Unknown]
